FAERS Safety Report 6250348-3 (Version None)
Quarter: 2009Q2

REPORT INFORMATION
  Report Type: 
  Country: None (occurrence: None)
  Receive Date: 20090626
  Receipt Date: 20090626
  Transmission Date: 20091009
  Serious: Yes (Hospitalization)
  Sender: FDA-Public Use
  Company Number: None

PATIENT
  Sex: Female
  Weight: 51.8 kg

DRUGS (2)
  1. ZOSYN [Suspect]
     Indication: CONDITION AGGRAVATED
     Dosage: 4.5 G Q8H IV
     Route: 042
     Dates: start: 20090616, end: 20090617
  2. ZOSYN [Suspect]
     Indication: CYSTIC FIBROSIS
     Dosage: 4.5 G Q8H IV
     Route: 042
     Dates: start: 20090616, end: 20090617

REACTIONS (6)
  - LEUKOPENIA [None]
  - OROPHARYNGEAL PAIN [None]
  - PAIN [None]
  - PYREXIA [None]
  - TREMOR [None]
  - VOMITING [None]
